FAERS Safety Report 18402676 (Version 2)
Quarter: 2021Q4

REPORT INFORMATION
  Report Type: Spontaneous
  Country: DE (occurrence: DE)
  Receive Date: 20201020
  Receipt Date: 20211008
  Transmission Date: 20220303
  Serious: Yes (Other)
  Sender: FDA-Public Use
  Company Number: DE-TEVA-2019-DE-1087890

PATIENT
  Age: 60 Year
  Sex: Female

DRUGS (44)
  1. CEFTRIAXONE [Suspect]
     Active Substance: CEFTRIAXONE
     Indication: Pseudomonas infection
     Dosage: UNK
     Route: 042
  2. CEFTRIAXONE [Suspect]
     Active Substance: CEFTRIAXONE
     Indication: Ulcerative keratitis
     Dosage: UNK
     Route: 065
  3. CEFTRIAXONE [Suspect]
     Active Substance: CEFTRIAXONE
     Indication: Serratia infection
  4. LEVOFLOXACIN [Suspect]
     Active Substance: LEVOFLOXACIN
     Indication: Endophthalmitis
     Dosage: UNK
     Route: 065
  5. LEVOFLOXACIN [Suspect]
     Active Substance: LEVOFLOXACIN
     Indication: Ulcerative keratitis
  6. LEVOFLOXACIN [Suspect]
     Active Substance: LEVOFLOXACIN
     Indication: Staphylococcal infection
  7. ACETAZOLAMIDE [Suspect]
     Active Substance: ACETAZOLAMIDE
     Indication: Pseudomonas infection
     Dosage: UNK
     Route: 048
  8. ACETAZOLAMIDE [Suspect]
     Active Substance: ACETAZOLAMIDE
     Indication: Ulcerative keratitis
     Dosage: UNK
     Route: 065
  9. ACETAZOLAMIDE [Suspect]
     Active Substance: ACETAZOLAMIDE
     Indication: Serratia infection
  10. CEFTAZIDIME [Suspect]
     Active Substance: CEFTAZIDIME
     Indication: Ulcerative keratitis
     Dosage: UNK
     Route: 065
  11. CEFTAZIDIME [Suspect]
     Active Substance: CEFTAZIDIME
     Indication: Endophthalmitis
  12. CEFTAZIDIME [Suspect]
     Active Substance: CEFTAZIDIME
     Indication: Staphylococcal infection
  13. CLINDAMYCIN [Suspect]
     Active Substance: CLINDAMYCIN
     Indication: Pseudomonas infection
     Dosage: UNK
     Route: 042
  14. CLINDAMYCIN [Suspect]
     Active Substance: CLINDAMYCIN
     Indication: Ulcerative keratitis
     Dosage: UNK
     Route: 065
  15. CLINDAMYCIN [Suspect]
     Active Substance: CLINDAMYCIN
     Indication: Serratia infection
  16. CYCLOPENTOLATE HYDROCHLORIDE [Suspect]
     Active Substance: CYCLOPENTOLATE HYDROCHLORIDE
     Indication: Ulcerative keratitis
     Dosage: UNK
     Route: 061
  17. CYCLOPENTOLATE HYDROCHLORIDE [Suspect]
     Active Substance: CYCLOPENTOLATE HYDROCHLORIDE
     Indication: Pseudomonas infection
     Dosage: UNK
     Route: 065
  18. CYCLOPENTOLATE HYDROCHLORIDE [Suspect]
     Active Substance: CYCLOPENTOLATE HYDROCHLORIDE
     Indication: Serratia infection
     Dosage: UNK
     Route: 050
  19. CYCLOPENTOLATE HYDROCHLORIDE [Suspect]
     Active Substance: CYCLOPENTOLATE HYDROCHLORIDE
     Indication: Staphylococcal infection
  20. DEXAMETHASONE [Suspect]
     Active Substance: DEXAMETHASONE
     Indication: Ulcerative keratitis
     Dosage: UNK
     Route: 065
  21. DEXAMETHASONE [Suspect]
     Active Substance: DEXAMETHASONE
     Indication: Endophthalmitis
  22. DEXAMETHASONE [Suspect]
     Active Substance: DEXAMETHASONE
     Indication: Staphylococcal infection
  23. GRAMICIDIN\NEOMYCIN\POLYMYXIN B SULFATE [Suspect]
     Active Substance: GRAMICIDIN\NEOMYCIN\POLYMYXIN B SULFATE
     Indication: Serratia infection
     Dosage: UNK
     Route: 061
  24. GRAMICIDIN\NEOMYCIN\POLYMYXIN B SULFATE [Suspect]
     Active Substance: GRAMICIDIN\NEOMYCIN\POLYMYXIN B SULFATE
     Indication: Pseudomonas infection
     Dosage: UNK
     Route: 065
  25. GRAMICIDIN\NEOMYCIN\POLYMYXIN B SULFATE [Suspect]
     Active Substance: GRAMICIDIN\NEOMYCIN\POLYMYXIN B SULFATE
     Indication: Ulcerative keratitis
     Dosage: UNK
     Route: 050
  26. GRAMICIDIN\NEOMYCIN\POLYMYXIN B SULFATE [Suspect]
     Active Substance: GRAMICIDIN\NEOMYCIN\POLYMYXIN B SULFATE
     Indication: Endophthalmitis
  27. MINOCYCLINE [Suspect]
     Active Substance: MINOCYCLINE HYDROCHLORIDE
     Indication: Ulcerative keratitis
     Dosage: UNK
     Route: 048
  28. MINOCYCLINE [Suspect]
     Active Substance: MINOCYCLINE HYDROCHLORIDE
     Indication: Staphylococcal infection
  29. MINOCYCLINE [Suspect]
     Active Substance: MINOCYCLINE HYDROCHLORIDE
     Indication: Endophthalmitis
  30. OFLOXACIN [Suspect]
     Active Substance: OFLOXACIN
     Indication: Serratia infection
     Dosage: UNK
     Route: 061
  31. OFLOXACIN [Suspect]
     Active Substance: OFLOXACIN
     Indication: Ulcerative keratitis
     Dosage: UNK
     Route: 050
  32. OFLOXACIN [Suspect]
     Active Substance: OFLOXACIN
     Indication: Pseudomonas infection
     Dosage: UNK
     Route: 065
  33. POLIHEXANIDE [Suspect]
     Active Substance: POLIHEXANIDE
     Indication: Pseudomonas infection
     Dosage: UNK
     Route: 061
  34. POLIHEXANIDE [Suspect]
     Active Substance: POLIHEXANIDE
     Indication: Ulcerative keratitis
     Dosage: UNK
     Route: 065
  35. POLIHEXANIDE [Suspect]
     Active Substance: POLIHEXANIDE
     Indication: Serratia infection
     Dosage: UNK
     Route: 050
  36. PROPAMIDINE ISETHIONATE [Suspect]
     Active Substance: PROPAMIDINE ISETHIONATE
     Indication: Serratia infection
     Dosage: UNK
     Route: 061
  37. PROPAMIDINE ISETHIONATE [Suspect]
     Active Substance: PROPAMIDINE ISETHIONATE
     Indication: Pseudomonas infection
     Dosage: UNK
     Route: 065
  38. PROPAMIDINE ISETHIONATE [Suspect]
     Active Substance: PROPAMIDINE ISETHIONATE
     Indication: Ulcerative keratitis
     Dosage: UNK
     Route: 050
  39. TIMOLOL [Suspect]
     Active Substance: TIMOLOL
     Indication: Ulcerative keratitis
     Dosage: UNK
     Route: 065
  40. TIMOLOL [Suspect]
     Active Substance: TIMOLOL
     Indication: Endophthalmitis
  41. TIMOLOL [Suspect]
     Active Substance: TIMOLOL
     Indication: Staphylococcal infection
  42. VANCOMYCIN [Suspect]
     Active Substance: VANCOMYCIN
     Indication: Endophthalmitis
     Dosage: UNK
     Route: 065
  43. VANCOMYCIN [Suspect]
     Active Substance: VANCOMYCIN
     Indication: Ulcerative keratitis
  44. VANCOMYCIN [Suspect]
     Active Substance: VANCOMYCIN
     Indication: Staphylococcal infection

REACTIONS (1)
  - Drug ineffective [Unknown]
